FAERS Safety Report 5142955-6 (Version None)
Quarter: 2006Q4

REPORT INFORMATION
  Report Type: 
  Country: None (occurrence: None)
  Receive Date: 20061103
  Receipt Date: 20061025
  Transmission Date: 20070319
  Serious: Yes (Other)
  Sender: FDA-Public Use
  Company Number: IE-JNJFOC-20061005848

PATIENT
  Sex: Female

DRUGS (2)
  1. REMICADE [Suspect]
     Indication: DRUG USE FOR UNKNOWN INDICATION
     Dosage: ^5^ DAILY DOSE
     Route: 042
  2. PIRITON [Concomitant]
     Route: 065

REACTIONS (5)
  - ANXIETY [None]
  - CHILLS [None]
  - HYPERHIDROSIS [None]
  - PYREXIA [None]
  - RESPIRATORY FAILURE [None]
